FAERS Safety Report 22205130 (Version 1)
Quarter: 2023Q2

REPORT INFORMATION
  Report Type: Spontaneous
  Country: US (occurrence: US)
  Receive Date: 20230413
  Receipt Date: 20230413
  Transmission Date: 20230721
  Serious: No
  Sender: FDA-Public Use
  Company Number: US-UCBSA-2023015388

PATIENT
  Age: 36 Year
  Sex: Male
  Weight: 81.64 kg

DRUGS (12)
  1. FINTEPLA [Suspect]
     Active Substance: FENFLURAMINE
     Indication: Seizure
     Dosage: 2 MILLILITER, 2X/DAY (BID)
     Dates: start: 20230206
  2. FINTEPLA [Suspect]
     Active Substance: FENFLURAMINE
     Dosage: 4 MILLILITER, 2X/DAY (BID)
     Dates: start: 20230213
  3. FINTEPLA [Suspect]
     Active Substance: FENFLURAMINE
     Dosage: 6 MILLILITER, 2X/DAY (BID)
     Dates: start: 20230220, end: 20230302
  4. FINTEPLA [Suspect]
     Active Substance: FENFLURAMINE
     Dosage: 2 MILLILITER, 2X/DAY (BID)
     Dates: start: 20230307
  5. FINTEPLA [Suspect]
     Active Substance: FENFLURAMINE
     Dosage: 4 MILLILITER, 2X/DAY (BID)
     Dates: start: 20230312, end: 20230315
  6. XCOPRI [Concomitant]
     Active Substance: CENOBAMATE
     Indication: Seizure
     Dosage: 200 MILLIGRAM, ONCE DAILY (QD)
  7. XCOPRI [Concomitant]
     Active Substance: CENOBAMATE
     Dosage: 100 MILLIGRAM, ONCE DAILY (QD)
  8. DEPAKOTE ER [Concomitant]
     Active Substance: DIVALPROEX SODIUM
     Indication: Seizure
     Dosage: 500 MILLIGRAM, 2X/DAY (BID), 3 IN THE MORNING AND 4 IN THE EVENING
  9. FELBATOL [Concomitant]
     Active Substance: FELBAMATE
     Indication: Seizure
     Dosage: 600 MILLIGRAM, 1 IN THE MORNING, 1 IN THE MIDDAY AND 2 IN THE EVENING
  10. QUETIAPINE [Concomitant]
     Active Substance: QUETIAPINE
     Indication: Seizure
     Dosage: 200 MG IN THE MORNING AND 500 MG IN THE EVENING.
  11. OLANZAPINE [Concomitant]
     Active Substance: OLANZAPINE
     Indication: Seizure
  12. LORAZEPAM [Concomitant]
     Active Substance: LORAZEPAM
     Indication: Seizure
     Dosage: AS NEEDED

REACTIONS (1)
  - Behaviour disorder [Recovering/Resolving]
